FAERS Safety Report 19931638 (Version 7)
Quarter: 2022Q1

REPORT INFORMATION
  Report Type: Report from Study
  Country: US (occurrence: US)
  Receive Date: 20211008
  Receipt Date: 20220301
  Transmission Date: 20220423
  Serious: Yes (Hospitalization)
  Sender: FDA-Public Use
  Company Number: US-NOVARTISTESTPH-NVSC2021US229639

PATIENT
  Age: 33 Year
  Sex: Female
  Weight: 59.864 kg

DRUGS (4)
  1. TREPROSTINIL [Suspect]
     Active Substance: TREPROSTINIL
     Indication: Pulmonary arterial hypertension
     Dosage: 96 NG/KG/MIN, CONT (STRENGTH: 10MG/ML)
     Route: 058
     Dates: start: 20210810
  2. TREPROSTINIL [Suspect]
     Active Substance: TREPROSTINIL
     Dosage: 96 NG/KG/MIN, CONT (STRENGTH: 5MG/ML)
     Route: 042
  3. ADEMPAS [Concomitant]
     Active Substance: RIOCIGUAT
     Indication: Product used for unknown indication
     Dosage: UNK
     Route: 065
  4. OPSUMIT [Concomitant]
     Active Substance: MACITENTAN
     Indication: Product used for unknown indication
     Dosage: UNK
     Route: 065

REACTIONS (6)
  - Fluid retention [Unknown]
  - Blood potassium decreased [Unknown]
  - Hypervolaemia [Unknown]
  - Abdominal pain [Unknown]
  - Dyspnoea [Unknown]
  - Device malfunction [Unknown]

NARRATIVE: CASE EVENT DATE: 20211103
